FAERS Safety Report 10983517 (Version 1)
Quarter: 2015Q1

REPORT INFORMATION
  Report Type: Spontaneous
  Country: US (occurrence: None)
  Receive Date: 20150302
  Receipt Date: 20150302
  Transmission Date: 20150721
  Serious: Yes (Other)
  Sender: FDA-Public Use
  Company Number: FK201402639

PATIENT
  Age: 16 Year
  Sex: Male

DRUGS (1)
  1. ROCURONIUM BROMIDE INJECTION (ROCURONIUM BROMIDE) (ROCURONIUM BROMIDE) [Suspect]
     Active Substance: ROCURONIUM BROMIDE
     Indication: PROPHYLAXIS
     Dosage: 1 IN 1 D
     Route: 042
     Dates: start: 20140630, end: 20140630

REACTIONS (1)
  - Drug effect prolonged [None]

NARRATIVE: CASE EVENT DATE: 20140630
